FAERS Safety Report 23269173 (Version 10)
Quarter: 2024Q3

REPORT INFORMATION
  Report Type: Spontaneous
  Country: US (occurrence: US)
  Receive Date: 20231207
  Receipt Date: 20240927
  Transmission Date: 20241017
  Serious: No
  Sender: BIOGEN
  Company Number: US-BIOGEN-2023BI01238494

PATIENT
  Sex: Male

DRUGS (1)
  1. TYSABRI [Suspect]
     Active Substance: NATALIZUMAB
     Indication: Multiple sclerosis
     Route: 050
     Dates: start: 20161020, end: 20231228

REACTIONS (20)
  - Product dose omission issue [Unknown]
  - Dental restoration failure [Unknown]
  - Illness [Unknown]
  - Malaise [Unknown]
  - Accidental device ingestion [Unknown]
  - Discomfort [Unknown]
  - Toothache [Unknown]
  - Mobility decreased [Unknown]
  - Confusional state [Unknown]
  - Gait disturbance [Unknown]
  - Tooth disorder [Unknown]
  - Tooth loss [Unknown]
  - Migraine [Unknown]
  - Brain fog [Unknown]
  - Oral pain [Unknown]
  - Gingivitis [Unknown]
  - Pain [Recovered/Resolved]
  - Burning sensation [Recovered/Resolved]
  - Cognitive disorder [Unknown]
  - Fatigue [Recovered/Resolved]

NARRATIVE: CASE EVENT DATE: 20230101
